FAERS Safety Report 7909165 (Version 3)
Quarter: 2012Q4

REPORT INFORMATION
  Report Type: 
  Country: US (occurrence: US)
  Receive Date: 20110421
  Receipt Date: 20121130
  Transmission Date: 20130627
  Serious: No
  Sender: FDA-Public Use
  Company Number: US-ASTRAZENECA-2011SE02086

PATIENT
  Age: 79 Year
  Sex: Male

DRUGS (2)
  1. METOPROLOL SUCCINATE [Suspect]
     Indication: HYPERTENSION
     Route: 048
  2. METOPROLOL SUCCINATE [Suspect]
     Indication: HYPERTENSION
     Route: 048

REACTIONS (9)
  - Drug hypersensitivity [Recovered/Resolved]
  - Blood pressure increased [Unknown]
  - Pruritus [Recovered/Resolved]
  - Back disorder [Recovered/Resolved]
  - Decreased activity [Unknown]
  - Malaise [Unknown]
  - Pyrexia [Unknown]
  - Peripheral coldness [Recovered/Resolved]
  - Drug ineffective [Unknown]
